FAERS Safety Report 8622158-0 (Version None)
Quarter: 2012Q3

REPORT INFORMATION
  Report Type: 
  Country: None (occurrence: None)
  Receive Date: 20120826
  Receipt Date: 20111130
  Transmission Date: 20120928
  Serious: Yes (Hospitalization, Other)
  Sender: FDA-Public Use
  Company Number: PHHY2011DE89000

PATIENT
  Sex: Female

DRUGS (4)
  1. CITALOPRAM HYDROBROMIDE [Concomitant]
     Indication: DEPRESSION
     Dosage: 20 MG, DAILY
  2. GABAPENTIN [Concomitant]
     Indication: NEURALGIA
     Dosage: 100 MG, DAILY
     Route: 048
  3. PRAMIPEXOLE DIHYCHLORIDE [Concomitant]
     Indication: MULTIPLE SCLEROSIS
     Dosage: 0.088 MG, DAILY
     Route: 048
  4. GILENYA [Suspect]
     Indication: MULTIPLE SCLEROSIS
     Dosage: 0.5 MG, QD
     Route: 048
     Dates: start: 20101101, end: 20110901

REACTIONS (5)
  - MULTIPLE SCLEROSIS RELAPSE [None]
  - DIVERTICULITIS [None]
  - HERPES SIMPLEX [None]
  - HERPES SIMPLEX OPHTHALMIC [None]
  - CONJUNCTIVITIS [None]
